FAERS Safety Report 5595552-2 (Version None)
Quarter: 2008Q1

REPORT INFORMATION
  Report Type: 
  Country: None (occurrence: None)
  Receive Date: 20080118
  Receipt Date: 20080109
  Transmission Date: 20080703
  Serious: Yes (Hospitalization)
  Sender: FDA-Public Use
  Company Number: PHNR2008AU00462

PATIENT
  Age: 86 Year
  Sex: Female

DRUGS (9)
  1. VOLTAREN [Suspect]
     Indication: NECK PAIN
     Dosage: UNK, TID
     Route: 061
     Dates: start: 20080102, end: 20080104
  2. LANSOPRAZOLE [Concomitant]
  3. LEVOTHYROXINE SODIUM [Concomitant]
  4. FUROSEMIDE [Concomitant]
  5. COVERSYL [Concomitant]
  6. DIAMICRON MR [Concomitant]
  7. DUROLAX [Concomitant]
  8. FOSAMAX [Concomitant]
  9. POTASSIUM CHLORIDE [Concomitant]

REACTIONS (2)
  - GASTRIC ULCER [None]
  - GASTROINTESTINAL HAEMORRHAGE [None]
